FAERS Safety Report 21582924 (Version 1)
Quarter: 2022Q4

REPORT INFORMATION
  Report Type: Report from Study
  Country: EG (occurrence: EG)
  Receive Date: 20221111
  Receipt Date: 20221111
  Transmission Date: 20230113
  Serious: Yes (Hospitalization, Other)
  Sender: FDA-Public Use
  Company Number: EG-002147023-NVSC2022EG251549

PATIENT
  Sex: Female

DRUGS (7)
  1. OMNITROPE [Suspect]
     Active Substance: SOMATROPIN
     Indication: Growth hormone deficiency
     Dosage: 0.6 MG, QD
     Route: 058
     Dates: start: 20201231
  2. OMNITROPE [Suspect]
     Active Substance: SOMATROPIN
     Dosage: 0.8 MG, QD
     Route: 058
  3. OMNITROPE [Suspect]
     Active Substance: SOMATROPIN
     Dosage: 0.9 MG, QD (STOP DATE JULY OR AUGUST 2022)
     Route: 058
     Dates: end: 2022
  4. IRON [Concomitant]
     Active Substance: IRON
     Indication: Malnutrition
     Dosage: 1.5 CENTIMETRE, QD
     Route: 048
     Dates: end: 2022
  5. IRON [Concomitant]
     Active Substance: IRON
     Dosage: UNK
     Route: 048
  6. VITAMINS [Concomitant]
     Active Substance: VITAMINS
     Indication: Malnutrition
     Dosage: 2.5 CENTIMETRE, BID
     Route: 048
     Dates: end: 2022
  7. VITAMINS [Concomitant]
     Active Substance: VITAMINS
     Dosage: UNK
     Route: 048

REACTIONS (12)
  - Food allergy [Unknown]
  - Weight decreased [Not Recovered/Not Resolved]
  - Abdominal distension [Not Recovered/Not Resolved]
  - Pyrexia [Recovered/Resolved]
  - Diarrhoea [Recovered/Resolved]
  - Vomiting [Recovered/Resolved]
  - Vitamin D deficiency [Not Recovered/Not Resolved]
  - Decreased appetite [Recovering/Resolving]
  - Yellow skin [Recovered/Resolved]
  - Nasopharyngitis [Recovered/Resolved]
  - Cough [Recovered/Resolved]
  - Pyrexia [Recovered/Resolved]

NARRATIVE: CASE EVENT DATE: 20220101
